FAERS Safety Report 5164200-8 (Version None)
Quarter: 2006Q4

REPORT INFORMATION
  Report Type: 
  Country: None (occurrence: None)
  Receive Date: 20061204
  Receipt Date: 20061123
  Transmission Date: 20070319
  Serious: Yes (Hospitalization)
  Sender: FDA-Public Use
  Company Number: DE-JNJFOC-20061105513

PATIENT
  Sex: Female
  Weight: 53 kg

DRUGS (5)
  1. INFLIXIMAB [Suspect]
     Route: 042
  2. INFLIXIMAB [Suspect]
     Route: 042
  3. INFLIXIMAB [Suspect]
     Indication: CROHN'S DISEASE
     Route: 042
  4. ENDOCORT [Concomitant]
     Indication: CROHN'S DISEASE
     Route: 065
  5. ZYTRIM [Concomitant]
     Indication: CROHN'S DISEASE
     Route: 065

REACTIONS (3)
  - BARTHOLIN'S CYST [None]
  - FISTULA [None]
  - IMPAIRED HEALING [None]
